FAERS Safety Report 17814837 (Version 1)
Quarter: 2020Q2

REPORT INFORMATION
  Report Type: Report from Study
  Country: None (occurrence: FR)
  Receive Date: 20200522
  Receipt Date: 20200522
  Transmission Date: 20200714
  Serious: Yes (Other)
  Sender: FDA-Public Use
  Company Number: FR-ABBVIE-20K-056-3414932-00

PATIENT
  Age: 49 Year
  Sex: Male

DRUGS (1)
  1. DUODOPA [Suspect]
     Active Substance: CARBIDOPA\LEVODOPA
     Indication: PARKINSON^S DISEASE
     Route: 050
     Dates: start: 201908

REACTIONS (3)
  - Fall [Unknown]
  - Transient ischaemic attack [Unknown]
  - Joint dislocation [Unknown]

NARRATIVE: CASE EVENT DATE: 20200424
